FAERS Safety Report 8338348-0 (Version None)
Quarter: 2012Q2

REPORT INFORMATION
  Report Type: 
  Country: None (occurrence: None)
  Receive Date: 20120504
  Receipt Date: 20120426
  Transmission Date: 20120825
  Serious: Yes (Hospitalization, Other)
  Sender: FDA-Public Use
  Company Number: JP-TEVA-330662USA

PATIENT
  Sex: Female
  Weight: 45 kg

DRUGS (5)
  1. LOXOPROFEN SODIUM [Suspect]
  2. ACYCLOVIR [Suspect]
     Indication: B-CELL LYMPHOMA
     Route: 048
  3. FAMOTIDINE [Suspect]
  4. TREANDA [Suspect]
     Indication: B-CELL LYMPHOMA
     Route: 042
     Dates: start: 20120306, end: 20120307
  5. SULFAMETHOXAZOLE AND TRIMETHOPRIM [Suspect]
     Indication: B-CELL LYMPHOMA

REACTIONS (1)
  - STEVENS-JOHNSON SYNDROME [None]
